FAERS Safety Report 6104232-6 (Version None)
Quarter: 2009Q1

REPORT INFORMATION
  Report Type: 
  Country: None (occurrence: None)
  Receive Date: 20090305
  Receipt Date: 20090224
  Transmission Date: 20090719
  Serious: Yes (Other)
  Sender: FDA-Public Use
  Company Number: NL-TEVA-186249ISR

PATIENT
  Sex: Female

DRUGS (3)
  1. VALPROIC ACID [Suspect]
  2. CARBAMAZEPINE [Suspect]
  3. VIGABATRIN [Suspect]

REACTIONS (2)
  - COMA [None]
  - SUICIDE ATTEMPT [None]
